FAERS Safety Report 7163617-X (Version None)
Quarter: 2010Q4

REPORT INFORMATION
  Report Type: 
  Country: None (occurrence: None)
  Receive Date: 20101215
  Receipt Date: 20100516
  Transmission Date: 20110411
  Serious: Yes (Hospitalization)
  Sender: FDA-Public Use
  Company Number: US-PFIZER INC-2010061780

PATIENT
  Sex: Female

DRUGS (4)
  1. LYRICA [Suspect]
     Indication: FIBROMYALGIA
     Dosage: UNK
  2. LYRICA [Suspect]
     Indication: NEURALGIA
  3. LYRICA [Suspect]
     Indication: NEUROPATHY PERIPHERAL
  4. ATIVAN [Suspect]
     Dosage: UNK

REACTIONS (6)
  - DISTURBANCE IN ATTENTION [None]
  - DRY MOUTH [None]
  - EUPHORIC MOOD [None]
  - FALL [None]
  - FOOT FRACTURE [None]
  - THINKING ABNORMAL [None]
